FAERS Safety Report 5125108-7 (Version None)
Quarter: 2006Q4

REPORT INFORMATION
  Report Type: 
  Country: None (occurrence: None)
  Receive Date: 20061011
  Receipt Date: 20060707
  Transmission Date: 20070319
  Serious: Yes (Hospitalization)
  Sender: FDA-Public Use
  Company Number: PHEH2006US08821

PATIENT
  Age: 63 Year
  Sex: Female

DRUGS (6)
  1. ZOMETA [Suspect]
     Indication: MULTIPLE MYELOMA
     Dosage: 4 MG, MONTHLY
     Dates: start: 20050701, end: 20060601
  2. ACYCLOVIR [Concomitant]
  3. PANCREASE [Concomitant]
     Indication: PANCREATITIS
  4. CALCIUM GLUCONATE [Concomitant]
  5. VITAMIN B6 [Concomitant]
  6. VITAMIN B COMPLEX CAP [Concomitant]

REACTIONS (1)
  - PANCREATITIS [None]
